FAERS Safety Report 9523635 (Version 6)
Quarter: 2014Q4

REPORT INFORMATION
  Report Type: Report from Study
  Country: BE (occurrence: BE)
  Receive Date: 20130913
  Receipt Date: 20141002
  Transmission Date: 20150529
  Serious: Yes (Hospitalization)
  Sender: FDA-Public Use
  Company Number: BE-TEVA-431878USA

PATIENT
  Age: 62 Year
  Sex: Female
  Weight: 79 kg

DRUGS (18)
  1. BENDAMUSTINE [Suspect]
     Active Substance: BENDAMUSTINE
     Indication: CHRONIC LYMPHOCYTIC LEUKAEMIA
     Dosage: 130.2 MILLIGRAM DAILY;
     Route: 042
     Dates: start: 20130820
  2. KEFADIM [Concomitant]
     Dosage: DOSE AND FREQUENCY NOT PROVIDED
     Route: 065
  3. FOLIC ACID. [Concomitant]
     Active Substance: FOLIC ACID
  4. BENDAMUSTINE [Suspect]
     Active Substance: BENDAMUSTINE
     Dosage: UID/QD
     Route: 042
     Dates: start: 20130821
  5. BENDAMUSTINE [Suspect]
     Active Substance: BENDAMUSTINE
     Dosage: UID/QD
     Route: 042
     Dates: start: 20130917
  6. CEFTAZIDIME. [Concomitant]
     Active Substance: CEFTAZIDIME
  7. ATORVASTATIN CALCIUM. [Concomitant]
     Active Substance: ATORVASTATIN CALCIUM
  8. COLECALCIFEROL [Concomitant]
     Active Substance: CHOLECALCIFEROL
  9. DEXPANTHENOL. [Concomitant]
     Active Substance: DEXPANTHENOL
  10. AVELOX [Concomitant]
     Active Substance: MOXIFLOXACIN HYDROCHLORIDE
     Indication: PRODUCT USED FOR UNKNOWN INDICATION
     Route: 065
     Dates: start: 20130830
  11. CIPROFLOXACIN. [Concomitant]
     Active Substance: CIPROFLOXACIN
     Route: 065
  12. RITUXIMAB [Suspect]
     Active Substance: RITUXIMAB
     Indication: CHRONIC LYMPHOCYTIC LEUKAEMIA
     Route: 042
     Dates: start: 20130819
  13. IBRUTINIB/PLACEBO [Suspect]
     Active Substance: IBRUTINIB
     Route: 048
     Dates: start: 20130902
  14. AVELOX [Concomitant]
     Active Substance: MOXIFLOXACIN HYDROCHLORIDE
     Route: 065
  15. METFORMIN [Concomitant]
     Active Substance: METFORMIN HYDROCHLORIDE
  16. GLUCOSAMINE [Concomitant]
     Active Substance: GLUCOSAMINE
  17. IBRUTINIB/PLACEBO [Suspect]
     Active Substance: IBRUTINIB
     Indication: CHRONIC LYMPHOCYTIC LEUKAEMIA
     Route: 048
     Dates: start: 20130820
  18. OLMESARTAN MEDOXOMIL. [Concomitant]
     Active Substance: OLMESARTAN MEDOXOMIL

REACTIONS (4)
  - Dyspepsia [Recovered/Resolved]
  - Diarrhoea [Recovered/Resolved]
  - Pyrexia [Recovered/Resolved]
  - Hypotension [Recovered/Resolved]

NARRATIVE: CASE EVENT DATE: 20130902
